FAERS Safety Report 6997891-7 (Version None)
Quarter: 2010Q3

REPORT INFORMATION
  Report Type: 
  Country: None (occurrence: None)
  Receive Date: 20100920
  Receipt Date: 20100907
  Transmission Date: 20110219
  Serious: Yes (Hospitalization)
  Sender: FDA-Public Use
  Company Number: ES-ELI_LILLY_AND_COMPANY-ES201009001743

PATIENT
  Sex: Female
  Weight: 67 kg

DRUGS (10)
  1. FORTEO [Suspect]
     Indication: OSTEOPOROSIS
     Dosage: 20 UG, DAILY (1/D)
     Dates: start: 20100302
  2. TOPAMAX [Concomitant]
     Indication: DEPRESSION
     Dosage: 1/8H
     Route: 048
  3. FLUOXETINA [Concomitant]
     Indication: DEPRESSION
     Dosage: 1/12H
     Route: 048
  4. URSOCHOL [Concomitant]
     Indication: CHOLESTASIS
     Dosage: 1/24H
     Route: 048
  5. AUXINA E [Concomitant]
     Indication: THYROID DISORDER
     Dosage: 1/24H
     Route: 048
  6. AUXINA A MASIVA [Concomitant]
     Indication: THYROID DISORDER
     Dosage: 1 TABLET/ 10 DAYS
     Route: 048
  7. DAFLON [Concomitant]
     Dosage: 1/8H
     Route: 048
  8. NATECAL D [Concomitant]
     Indication: BLOOD CALCIUM
     Dosage: 1/24H
     Route: 048
  9. ZALDIAR [Concomitant]
     Indication: PAIN
     Dosage: 1/8H
     Route: 048
  10. DIAZEPAM [Concomitant]
     Indication: INSOMNIA
     Dosage: 1/24H
     Route: 048

REACTIONS (5)
  - BLOOD CHOLESTEROL INCREASED [None]
  - DRUG DISPENSING ERROR [None]
  - EXPIRED DRUG ADMINISTERED [None]
  - FALL [None]
  - HIP FRACTURE [None]
